FAERS Safety Report 4673038-7 (Version None)
Quarter: 2005Q2

REPORT INFORMATION
  Report Type: 
  Country: None (occurrence: None)
  Receive Date: 20050523
  Receipt Date: 20050509
  Transmission Date: 20051028
  Serious: Yes (Life-Threatening, Hospitalization)
  Sender: FDA-Public Use
  Company Number: 2005-01020

PATIENT
  Age: 64 Year
  Sex: Female
  Weight: 38 kg

DRUGS (5)
  1. VELCADE [Suspect]
     Indication: MULTIPLE MYELOMA
     Dosage: 2.00 MG, QD, INTRAVENOUS
     Route: 042
     Dates: start: 20050204, end: 20050330
  2. DEXAMETHASONE [Concomitant]
  3. CITALOPRAM HYDROBROMIDE [Concomitant]
  4. OMEPRAZOLE [Concomitant]
  5. TRAMADOL HCL [Concomitant]

REACTIONS (7)
  - ARTHRALGIA [None]
  - GENERAL PHYSICAL HEALTH DETERIORATION [None]
  - LUNG DISORDER [None]
  - PAIN IN EXTREMITY [None]
  - RESPIRATORY TRACT INFECTION [None]
  - THROMBOCYTOPENIA [None]
  - TREMOR [None]
